FAERS Safety Report 5747681-8 (Version None)
Quarter: 2008Q2

REPORT INFORMATION
  Report Type: 
  Country: None (occurrence: None)
  Receive Date: 20080523
  Receipt Date: 20080519
  Transmission Date: 20081010
  Serious: Yes (Life-Threatening)
  Sender: FDA-Public Use
  Company Number: FR-ASTRAZENECA-2008CG00735

PATIENT
  Age: 13821 Day
  Sex: Female

DRUGS (3)
  1. DIPRIVAN [Suspect]
     Indication: INDUCTION OF ANAESTHESIA
     Route: 042
     Dates: start: 20080408, end: 20080408
  2. RAPIFEN [Suspect]
     Indication: INDUCTION OF ANAESTHESIA
     Route: 042
     Dates: start: 20080408, end: 20080408
  3. LUGOL CAP [Concomitant]

REACTIONS (4)
  - BRONCHOSPASM [None]
  - HYPOTENSION [None]
  - RASH [None]
  - SHOCK [None]
